FAERS Safety Report 23802979 (Version 1)
Quarter: 2024Q2

REPORT INFORMATION
  Report Type: Spontaneous
  Country: RU (occurrence: None)
  Receive Date: 20240501
  Receipt Date: 20240501
  Transmission Date: 20240715
  Serious: Yes (Other)
  Sender: FDA-Public Use
  Company Number: RU-ROCHE-3555018

PATIENT
  Sex: Female

DRUGS (1)
  1. RITUXIMAB [Suspect]
     Active Substance: RITUXIMAB
     Indication: Product used for unknown indication
     Route: 065

REACTIONS (8)
  - Gastrointestinal disorder [Unknown]
  - Female reproductive tract disorder [Unknown]
  - Cardiac disorder [Unknown]
  - Skin disorder [Unknown]
  - Depression [Unknown]
  - Swelling [Unknown]
  - Oedema [Unknown]
  - Nail disorder [Unknown]
